FAERS Safety Report 5798120-2 (Version None)
Quarter: 2008Q2

REPORT INFORMATION
  Report Type: 
  Country: None (occurrence: None)
  Receive Date: 20080623
  Receipt Date: 20080306
  Transmission Date: 20081010
  Serious: Yes (Life-Threatening, Hospitalization)
  Sender: FDA-Public Use
  Company Number: 8030478

PATIENT
  Age: 48 Year
  Sex: Female
  Weight: 114 kg

DRUGS (3)
  1. XYZAL [Suspect]
     Indication: SINUS CONGESTION
     Dosage: 5 MG /D PO
     Route: 048
     Dates: start: 20080304, end: 20080304
  2. XYZAL [Suspect]
     Indication: UPPER RESPIRATORY TRACT INFECTION
     Dosage: 5 MG /D PO
     Route: 048
     Dates: start: 20080304, end: 20080304
  3. AMOXICILLIN [Concomitant]

REACTIONS (1)
  - ANAPHYLACTIC REACTION [None]
